FAERS Safety Report 6095600-X (Version None)
Quarter: 2009Q1

REPORT INFORMATION
  Report Type: 
  Country: None (occurrence: None)
  Receive Date: 20090227
  Receipt Date: 20080430
  Transmission Date: 20090719
  Serious: No
  Sender: FDA-Public Use
  Company Number: A0726145A

PATIENT
  Age: 61 Year
  Sex: Female

DRUGS (2)
  1. LAMICTAL [Suspect]
     Indication: RESTLESS LEGS SYNDROME
     Dosage: 25MG UNKNOWN
     Route: 048
  2. ZYRTEC [Concomitant]
     Indication: MULTIPLE ALLERGIES

REACTIONS (1)
  - THERAPEUTIC RESPONSE UNEXPECTED [None]
